FAERS Safety Report 6017518-0 (Version None)
Quarter: 2008Q4

REPORT INFORMATION
  Report Type: 
  Country: None (occurrence: None)
  Receive Date: 20081223
  Receipt Date: 20081218
  Transmission Date: 20090506
  Serious: Yes (Other)
  Sender: FDA-Public Use
  Company Number: US-AMGEN-KDL285009

PATIENT
  Sex: Female
  Weight: 54 kg

DRUGS (8)
  1. PROCRIT [Suspect]
     Indication: PRE-EXISTING DISEASE
     Route: 065
     Dates: start: 20070314, end: 20080114
  2. PEGYLATED INTERFERON ALFA-2B [Concomitant]
     Dates: start: 20070228, end: 20071204
  3. BISOPROLOL FUMARATE AND HYDROCHLOROTHIAZIDE [Concomitant]
     Route: 048
  4. METFORMIN HCL [Concomitant]
  5. LOVASTATIN [Concomitant]
     Route: 048
  6. LOTREL [Concomitant]
     Route: 048
  7. GLIMEPIRIDE [Concomitant]
  8. RIBAVIRIN [Concomitant]
     Dates: start: 20070228, end: 20071119

REACTIONS (3)
  - ANTI-ERYTHROPOIETIN ANTIBODY POSITIVE [None]
  - APLASIA PURE RED CELL [None]
  - NEUTRALISING ANTIBODIES POSITIVE [None]
